FAERS Safety Report 19955832 (Version 2)
Quarter: 2021Q4

REPORT INFORMATION
  Report Type: Spontaneous
  Country: US (occurrence: US)
  Receive Date: 20211014
  Receipt Date: 20211210
  Transmission Date: 20220303
  Serious: No
  Sender: FDA-Public Use
  Company Number: US-GW PHARMA-202110USGW04973

PATIENT

DRUGS (2)
  1. EPIDIOLEX [Suspect]
     Active Substance: CANNABIDIOL
     Indication: Lennox-Gastaut syndrome
     Dosage: 500 MILLIGRAM (FREQUENCY NOT REPORTED)
     Route: 048
     Dates: start: 20190612, end: 20190701
  2. EPIDIOLEX [Suspect]
     Active Substance: CANNABIDIOL
     Dosage: 8.61 MG/KG/DAY, 250 MILLIGRAM, BID
     Route: 048
     Dates: start: 20190702

REACTIONS (1)
  - Weight decreased [Unknown]
